FAERS Safety Report 22616914 (Version 1)
Quarter: 2023Q2

REPORT INFORMATION
  Report Type: Other
  Country: CN (occurrence: None)
  Receive Date: 20230619
  Receipt Date: 20230619
  Transmission Date: 20230721
  Serious: Yes (Other)
  Sender: FDA-Public Use
  Company Number: CN-ROCHE-3368095

PATIENT

DRUGS (2)
  1. BEVACIZUMAB [Suspect]
     Active Substance: BEVACIZUMAB
     Indication: Non-small cell lung cancer
     Route: 042
  2. ICOTINIB [Suspect]
     Active Substance: ICOTINIB
     Indication: Non-small cell lung cancer
     Route: 042

REACTIONS (6)
  - Albuminuria [Unknown]
  - Hepatotoxicity [Unknown]
  - Stomatitis [Unknown]
  - Rash [Unknown]
  - Diarrhoea [Unknown]
  - Hypertension [Unknown]
